FAERS Safety Report 7267122-1 (Version None)
Quarter: 2011Q1

REPORT INFORMATION
  Report Type: 
  Country: None (occurrence: None)
  Receive Date: 20110201
  Receipt Date: 20110128
  Transmission Date: 20110831
  Serious: Yes (Death)
  Sender: FDA-Public Use
  Company Number: DE-JNJFOC-20110107375

PATIENT
  Age: 93 Year
  Sex: Female

DRUGS (6)
  1. RISPERDAL [Suspect]
     Indication: DELUSION
     Route: 048
  2. RISPERDAL [Suspect]
     Indication: RESTLESSNESS
     Route: 048
  3. HALDOL [Suspect]
     Indication: RESTLESSNESS
     Route: 048
  4. HALDOL [Suspect]
     Indication: HALLUCINATION, VISUAL
     Route: 048
  5. RISPERDAL [Suspect]
     Indication: HALLUCINATION, VISUAL
     Route: 048
  6. HALDOL [Suspect]
     Indication: DELUSION
     Route: 048

REACTIONS (2)
  - TARDIVE DYSKINESIA [None]
  - PNEUMONIA ASPIRATION [None]
